FAERS Safety Report 8350422-1 (Version None)
Quarter: 2012Q2

REPORT INFORMATION
  Report Type: 
  Country: None (occurrence: None)
  Receive Date: 20120510
  Receipt Date: 20120503
  Transmission Date: 20120825
  Serious: Yes (Other)
  Sender: FDA-Public Use
  Company Number: US-BAYER-2012-044443

PATIENT
  Sex: Female

DRUGS (3)
  1. YAZ [Suspect]
     Dosage: UNK
     Dates: start: 20071101, end: 20100401
  2. DROSPIRENONE AND ETHINYL ESTRADIOL [Suspect]
     Dosage: UNK
     Dates: start: 20071101, end: 20100401
  3. YASMIN [Suspect]
     Dosage: UNK
     Dates: start: 20071101, end: 20100401

REACTIONS (5)
  - EMOTIONAL DISTRESS [None]
  - CHOLECYSTITIS [None]
  - INJURY [None]
  - PAIN [None]
  - ANXIETY [None]
